FAERS Safety Report 4552597-9 (Version None)
Quarter: 2005Q1

REPORT INFORMATION
  Report Type: 
  Country: None (occurrence: None)
  Receive Date: 20050114
  Receipt Date: 20041026
  Transmission Date: 20050727
  Serious: No
  Sender: FDA-Public Use
  Company Number: US-GLAXOSMITHKLINE-A0531425A

PATIENT
  Age: 60 Year

DRUGS (1)
  1. IMITREX [Suspect]
     Indication: HEADACHE

REACTIONS (1)
  - ADVERSE EVENT [None]
